FAERS Safety Report 5450552-8 (Version None)
Quarter: 2007Q3

REPORT INFORMATION
  Report Type: 
  Country: None (occurrence: None)
  Receive Date: 20070910
  Receipt Date: 20070813
  Transmission Date: 20080115
  Serious: Yes (Hospitalization)
  Sender: FDA-Public Use
  Company Number: 2006-06-0568

PATIENT
  Age: 49 Year
  Sex: Female
  Weight: 46.2669 kg

DRUGS (7)
  1. SCH 503034  (HCV PROTEASE INHIBITOR) [Suspect]
     Indication: HEPATITIS C
     Dosage: 400 MG; TID; PO
     Route: 048
     Dates: start: 20051207, end: 20060512
  2. PEG-INTRON [Suspect]
     Indication: HEPATITIS C
     Dosage: 80 MCG; QW; SC
     Route: 058
     Dates: start: 20051130, end: 20060510
  3. PLACEBO [Concomitant]
     Indication: HEPATITIS C
     Dosage: PO
     Route: 048
     Dates: start: 20051207, end: 20060501
  4. LORCET-HD [Concomitant]
  5. VALIUM [Concomitant]
  6. PLAVIX [Concomitant]
  7. EPOGEN [Concomitant]

REACTIONS (9)
  - ARTHRALGIA [None]
  - INTERVERTEBRAL DISC PROTRUSION [None]
  - MUSCULAR WEAKNESS [None]
  - NERVE ROOT COMPRESSION [None]
  - NO THERAPEUTIC RESPONSE [None]
  - OEDEMA PERIPHERAL [None]
  - RADIAL NERVE PALSY [None]
  - SPINAL COLUMN STENOSIS [None]
  - SPINAL OSTEOARTHRITIS [None]
